FAERS Safety Report 14956896 (Version 1)
Quarter: 2018Q2

REPORT INFORMATION
  Report Type: Spontaneous
  Country: US (occurrence: US)
  Receive Date: 20180531
  Receipt Date: 20180531
  Transmission Date: 20180711
  Serious: No
  Sender: FDA-Public Use
  Company Number: US-BAYER-2018-097541

PATIENT
  Age: 84 Year
  Sex: Female
  Weight: 52.97 kg

DRUGS (3)
  1. MIRALAX [Suspect]
     Active Substance: POLYETHYLENE GLYCOL 3350
     Indication: GASTROINTESTINAL DISORDER
     Route: 048
     Dates: start: 201805, end: 20180516
  2. BAYER LOW DOSE [Suspect]
     Active Substance: ASPIRIN
     Indication: HEADACHE
     Dosage: 1 IN THE MORNING
     Route: 048
     Dates: start: 201805, end: 20180520
  3. BAYER LOW DOSE [Suspect]
     Active Substance: ASPIRIN
     Indication: HYPERTENSION

REACTIONS (3)
  - Product use in unapproved indication [Unknown]
  - Blood pressure increased [Recovered/Resolved]
  - Therapeutic response unexpected [Unknown]

NARRATIVE: CASE EVENT DATE: 201805
